FAERS Safety Report 26210760 (Version 1)
Quarter: 2025Q4

REPORT INFORMATION
  Report Type: Spontaneous
  Country: US (occurrence: US)
  Receive Date: 20251230
  Receipt Date: 20251230
  Transmission Date: 20260117
  Serious: No
  Sender: LEO PHARM
  Company Number: US-LEO Pharma-385241

PATIENT
  Age: 29 Year
  Sex: Female

DRUGS (2)
  1. ADBRY [Suspect]
     Active Substance: TRALOKINUMAB-LDRM
     Indication: Eczema
     Dosage: TREATMENT IS ONGOING??ADBRY 2-300MG PENS UNDER THE SKIN ON DAY 1 (12/3/25)?THEN 1-300MG PEN EVERY 14
     Route: 058
     Dates: start: 20251203
  2. ADBRY [Suspect]
     Active Substance: TRALOKINUMAB-LDRM
     Indication: Eczema
     Dosage: TREATMENT IS ONGOING??ADBRY 2-300MG PENS UNDER THE SKIN ON DAY 1 (12/3/25)?THEN 1-300MG PEN EVERY 14
     Route: 058

REACTIONS (2)
  - Fatigue [Unknown]
  - Nausea [Unknown]
